FAERS Safety Report 10527986 (Version 1)
Quarter: 2014Q4

REPORT INFORMATION
  Report Type: Spontaneous
  Country: DK (occurrence: FR)
  Receive Date: 20141020
  Receipt Date: 20141020
  Transmission Date: 20150528
  Serious: Yes (Hospitalization)
  Sender: FDA-Public Use
  Company Number: FR-FRI-1000071636

PATIENT
  Age: 83 Year
  Sex: Female

DRUGS (2)
  1. LEXOMIL [Concomitant]
     Active Substance: BROMAZEPAM
     Dosage: 1 DF
     Route: 048
     Dates: start: 201308
  2. ESCITALOPRAM [Suspect]
     Active Substance: ESCITALOPRAM OXALATE
     Dosage: 20 MG
     Route: 048
     Dates: start: 201308, end: 20140903

REACTIONS (3)
  - Pruritus generalised [Recovered/Resolved]
  - Rash vesicular [Recovered/Resolved]
  - Urticaria [Recovered/Resolved]

NARRATIVE: CASE EVENT DATE: 201308
